FAERS Safety Report 15649849 (Version 6)
Quarter: 2019Q1

REPORT INFORMATION
  Report Type: Spontaneous
  Country: NO (occurrence: NO)
  Receive Date: 20181123
  Receipt Date: 20190321
  Transmission Date: 20190417
  Serious: Yes (Hospitalization, Other)
  Sender: FDA-Public Use
  Company Number: PHHY2018NO025794

PATIENT
  Age: 49 Year
  Sex: Male

DRUGS (10)
  1. TETRACYCLINE [Concomitant]
     Active Substance: TETRACYCLINE
     Indication: PULMONARY TOXICITY
     Dosage: UNK
     Route: 065
  2. PREDNISOLONE. [Suspect]
     Active Substance: PREDNISOLONE
     Dosage: INCREASED TO 80MG DAILY
     Route: 065
  3. CISPLATIN. [Suspect]
     Active Substance: CISPLATIN
     Indication: SEMINOMA
     Dosage: UNK
     Route: 065
  4. PREDNISOLONE. [Suspect]
     Active Substance: PREDNISOLONE
     Indication: PULMONARY TOXICITY
     Dosage: 40 MG, UNK
     Route: 065
  5. PREDNISOLONE. [Suspect]
     Active Substance: PREDNISOLONE
     Indication: PNEUMONITIS
     Dosage: 30 MG, AFTER 3 WEEKS
     Route: 065
  6. PREDNISOLONE. [Suspect]
     Active Substance: PREDNISOLONE
     Dosage: INCREASED TO 70MG DAILY
     Route: 065
  7. TETRACYCLINE [Concomitant]
     Active Substance: TETRACYCLINE
     Indication: PNEUMONITIS
  8. GRANULOCYTE COLONY STIMULATING FACTOR [Suspect]
     Active Substance: GRANULOCYTE COLONY-STIMULATING FACTOR NOS
     Indication: SEMINOMA
     Dosage: UNK
     Route: 065
  9. ETOPOSIDE. [Suspect]
     Active Substance: ETOPOSIDE
     Indication: SEMINOMA
     Dosage: UNK
     Route: 065
  10. BLEOMYCIN [Suspect]
     Active Substance: BLEOMYCIN SULFATE
     Indication: SEMINOMA
     Dosage: UNK
     Route: 065

REACTIONS (10)
  - Pneumocystis jirovecii infection [Recovering/Resolving]
  - Pneumothorax [Unknown]
  - Cytomegalovirus infection [Recovering/Resolving]
  - Dyspnoea [Recovering/Resolving]
  - Cough [Unknown]
  - Subcutaneous emphysema [Unknown]
  - Haemophilus infection [Unknown]
  - Pneumonitis [Recovering/Resolving]
  - Candida infection [Recovering/Resolving]
  - Product use in unapproved indication [Unknown]
